FAERS Safety Report 10501914 (Version 2)
Quarter: 2015Q2

REPORT INFORMATION
  Report Type: Spontaneous
  Country: US (occurrence: US)
  Receive Date: 20141007
  Receipt Date: 20150609
  Transmission Date: 20150821
  Serious: Yes (Hospitalization, Other)
  Sender: FDA-Public Use
  Company Number: US-PFIZER INC-2014271386

PATIENT
  Age: 85 Year
  Sex: Female

DRUGS (1)
  1. LIPITOR [Suspect]
     Active Substance: ATORVASTATIN CALCIUM
     Indication: BLOOD PRESSURE
     Dosage: UNK
     Dates: start: 1998

REACTIONS (4)
  - Dysgraphia [Unknown]
  - Hearing impaired [Not Recovered/Not Resolved]
  - Blood pressure decreased [Unknown]
  - Breast cancer [Not Recovered/Not Resolved]
